FAERS Safety Report 8808859 (Version 1)
Quarter: 2012Q4

REPORT INFORMATION
  Report Type: Spontaneous
  Country: US (occurrence: None)
  Receive Date: 20120921
  Receipt Date: 20120921
  Transmission Date: 20130627
  Serious: No
  Sender: FDA-Public Use
  Company Number: None

PATIENT
  Age: 62 Year
  Sex: Female
  Weight: 85.73 kg

DRUGS (1)
  1. SALONPAS PAIN RELIEF [Suspect]
     Indication: SHOULDER PAIN
     Route: 062
     Dates: start: 20120916, end: 20120916

REACTIONS (2)
  - Erythema [None]
  - Pruritus [None]
